FAERS Safety Report 11654323 (Version 6)
Quarter: 2015Q4

REPORT INFORMATION
  Report Type: Report from Study
  Country: US (occurrence: US)
  Receive Date: 20151023
  Receipt Date: 20151210
  Transmission Date: 20160304
  Serious: Yes (Hospitalization, Other)
  Sender: FDA-Public Use
  Company Number: US-AMGEN-USASL2015109851

PATIENT
  Age: 79 Year
  Sex: Female

DRUGS (1)
  1. ENBREL [Suspect]
     Active Substance: ETANERCEPT
     Indication: PSORIASIS
     Dosage: 50 MG, UNK
     Route: 065
     Dates: start: 20151020

REACTIONS (12)
  - Hypersensitivity [Recovering/Resolving]
  - Device issue [Unknown]
  - Off label use [Unknown]
  - Injection site reaction [Unknown]
  - Angioedema [Unknown]
  - Condition aggravated [Unknown]
  - Psoriasis [Unknown]
  - Underdose [Unknown]
  - Latent tuberculosis [Not Recovered/Not Resolved]
  - Fatigue [Recovering/Resolving]
  - Lip swelling [Unknown]
  - Paraesthesia oral [Unknown]

NARRATIVE: CASE EVENT DATE: 2015
